FAERS Safety Report 6956977-3 (Version None)
Quarter: 2010Q3

REPORT INFORMATION
  Report Type: 
  Country: None (occurrence: None)
  Receive Date: 20100827
  Receipt Date: 20100827
  Transmission Date: 20110219
  Serious: No
  Sender: FDA-Public Use
  Company Number: None

PATIENT
  Age: 53 Year
  Sex: Male
  Weight: 101.6057 kg

DRUGS (1)
  1. PERCOCET [Suspect]
     Indication: PAIN
     Dosage: 1 AS NEEDED PO
     Route: 048

REACTIONS (1)
  - RASH PRURITIC [None]
